FAERS Safety Report 24997520 (Version 2)
Quarter: 2025Q1

REPORT INFORMATION
  Report Type: Report from Study
  Country: US (occurrence: US)
  Receive Date: 20250222
  Receipt Date: 20250308
  Transmission Date: 20250409
  Serious: Yes (Other)
  Sender: ABBVIE
  Company Number: US-ABBVIE-6141594

PATIENT
  Age: 20 Year
  Sex: Female
  Weight: 104.32 kg

DRUGS (2)
  1. SKYRIZI [Suspect]
     Active Substance: RISANKIZUMAB-RZAA
     Indication: Psoriasis
     Route: 058
     Dates: start: 20230818
  2. VITAMIN D [Concomitant]
     Active Substance: VITAMIN D NOS
     Indication: Vitamin supplementation

REACTIONS (6)
  - Chronic sinusitis [Recovered/Resolved]
  - Sinusitis [Recovered/Resolved]
  - Sinusitis [Recovered/Resolved]
  - Impaired healing [Unknown]
  - Psoriasis [Recovering/Resolving]
  - Sinus disorder [Unknown]

NARRATIVE: CASE EVENT DATE: 20230801
